FAERS Safety Report 7932599-2 (Version None)
Quarter: 2011Q4

REPORT INFORMATION
  Report Type: 
  Country: None (occurrence: None)
  Receive Date: 20111122
  Receipt Date: 20100430
  Transmission Date: 20120403
  Serious: No
  Sender: FDA-Public Use
  Company Number: 2009BI027878

PATIENT
  Sex: Female

DRUGS (4)
  1. TYSABRI [Suspect]
     Indication: MULTIPLE SCLEROSIS
     Route: 042
  2. TYSABRI [Suspect]
     Route: 042
     Dates: start: 20080306, end: 20090901
  3. TYSABRI [Suspect]
     Route: 042
     Dates: start: 20050114, end: 20050228
  4. TYSABRI [Suspect]
     Route: 042
     Dates: start: 20111102

REACTIONS (14)
  - DYSPHAGIA [None]
  - TONGUE BITING [None]
  - FATIGUE [None]
  - MULTIPLE SCLEROSIS RELAPSE [None]
  - CONTUSION [None]
  - NIGHT BLINDNESS [None]
  - BALANCE DISORDER [None]
  - FUNGAL INFECTION [None]
  - BLADDER DISORDER [None]
  - FALL [None]
  - NUCLEAR MAGNETIC RESONANCE IMAGING ABNORMAL [None]
  - MOUTH INJURY [None]
  - CHOKING [None]
  - GASTROINTESTINAL DISORDER [None]
